FAERS Safety Report 21890536 (Version 1)
Quarter: 2023Q1

REPORT INFORMATION
  Report Type: Spontaneous
  Country: US (occurrence: US)
  Receive Date: 20230120
  Receipt Date: 20230120
  Transmission Date: 20230418
  Serious: Yes (Other)
  Sender: FDA-Public Use
  Company Number: US-STRIDES ARCOLAB LIMITED-2022SP002587

PATIENT
  Age: 62 Year
  Sex: Female

DRUGS (4)
  1. METHOTREXATE [Suspect]
     Active Substance: METHOTREXATE
     Indication: Acute febrile neutrophilic dermatosis
     Dosage: UNK
     Route: 065
  2. METHOTREXATE [Suspect]
     Active Substance: METHOTREXATE
     Indication: Myelofibrosis
  3. PREDNISONE [Concomitant]
     Active Substance: PREDNISONE
     Indication: Acute febrile neutrophilic dermatosis
     Dosage: UNK
     Route: 065
  4. PREDNISONE [Concomitant]
     Active Substance: PREDNISONE
     Indication: Myelofibrosis

REACTIONS (2)
  - Liver function test increased [Unknown]
  - Off label use [Unknown]
